FAERS Safety Report 7261006-0 (Version None)
Quarter: 2011Q1

REPORT INFORMATION
  Report Type: 
  Country: None (occurrence: None)
  Receive Date: 20110130
  Receipt Date: 20101123
  Transmission Date: 20110831
  Serious: No
  Sender: FDA-Public Use
  Company Number: US-ABBOTT-10P-163-0687397-00

PATIENT
  Age: 25 Year
  Sex: Female

DRUGS (12)
  1. IMURAN [Concomitant]
     Indication: COLITIS ULCERATIVE
  2. HUMIRA [Suspect]
     Dosage: DAY 15
     Route: 058
  3. ASACOL [Concomitant]
     Indication: COLITIS ULCERATIVE
  4. VITAMIN D [Concomitant]
     Indication: PRODUCT USED FOR UNKNOWN INDICATION
     Dosage: TAPERING
  5. BUSPIRONE HCL [Concomitant]
     Indication: ANXIETY
  6. VIT B12 [Concomitant]
     Indication: PRODUCT USED FOR UNKNOWN INDICATION
  7. HUMIRA [Suspect]
     Indication: COLITIS ULCERATIVE
     Dosage: DAY 1
     Route: 058
     Dates: start: 20101123
  8. HUMIRA [Suspect]
     Route: 058
  9. ABILIFY [Concomitant]
     Indication: MENTAL DISORDER
  10. VIT E [Concomitant]
     Indication: PRODUCT USED FOR UNKNOWN INDICATION
  11. PROZAC [Concomitant]
     Indication: DEPRESSION
  12. METFORMIN [Concomitant]
     Indication: DIABETES MELLITUS

REACTIONS (3)
  - INJECTION SITE HAEMORRHAGE [None]
  - INJECTION SITE PAIN [None]
  - INJECTION SITE SWELLING [None]
